FAERS Safety Report 7777191-8 (Version None)
Quarter: 2011Q3

REPORT INFORMATION
  Report Type: 
  Country: None (occurrence: None)
  Receive Date: 20110926
  Receipt Date: 20110917
  Transmission Date: 20111222
  Serious: Yes (Life-Threatening, Hospitalization, Other)
  Sender: FDA-Public Use
  Company Number: US-ABBOTT-08P-163-0486167-00

PATIENT
  Sex: Female
  Weight: 37.682 kg

DRUGS (31)
  1. RHINOFLEX [Concomitant]
     Indication: ABDOMINAL PAIN
     Dosage: 50/500MG
     Route: 048
  2. HYOMAX [Concomitant]
     Indication: ANTIINFLAMMATORY THERAPY
  3. TRAMADOL HCL [Suspect]
     Indication: CROHN'S DISEASE
  4. ZOFRAN [Concomitant]
     Indication: VOMITING
  5. VISTARIL [Concomitant]
     Indication: ANXIETY
  6. RHINOFLEX [Concomitant]
     Indication: CROHN'S DISEASE
  7. KEPPRA [Concomitant]
     Indication: CONVULSION
  8. SUCRALFATE [Concomitant]
     Indication: GASTROOESOPHAGEAL REFLUX DISEASE
  9. FENTANYL [Concomitant]
     Indication: CROHN'S DISEASE
     Dosage: PATCH
     Route: 062
  10. DICYLAMINE [Concomitant]
     Indication: ABDOMINAL PAIN
  11. HUMIRA [Suspect]
     Route: 058
     Dates: end: 20090301
  12. LYCOSAMINE [Concomitant]
     Indication: PRODUCT USED FOR UNKNOWN INDICATION
  13. SAVELLA [Concomitant]
     Indication: ANXIETY
  14. HUMIRA [Suspect]
     Indication: CROHN'S DISEASE
     Dates: start: 20080601, end: 20080601
  15. ZOFRAN [Concomitant]
     Indication: NAUSEA
     Route: 048
  16. ELAVIL [Concomitant]
     Indication: SLEEP DISORDER
  17. ELAVIL [Concomitant]
     Indication: ANXIETY
  18. FENTANYL [Concomitant]
     Indication: PAIN
  19. HUMIRA [Suspect]
     Dates: start: 20110901
  20. FOLIC ACID [Concomitant]
     Indication: PRODUCT USED FOR UNKNOWN INDICATION
  21. SYNTHROID [Concomitant]
     Indication: HYPOTHYROIDISM
  22. LORTAB [Concomitant]
     Indication: PAIN
  23. HUMIRA [Suspect]
     Indication: CROHN'S DISEASE
     Dates: start: 20110901
  24. TRAMADOL HCL [Suspect]
     Indication: PAIN
     Route: 048
     Dates: start: 20080501
  25. ULTRAM [Suspect]
     Indication: PRODUCT USED FOR UNKNOWN INDICATION
     Dates: end: 20080101
  26. PHENERGAN HCL [Concomitant]
     Indication: NAUSEA
     Dosage: QHS
     Route: 048
  27. PHENERGAN HCL [Concomitant]
     Indication: VOMITING
  28. COMPAZINE [Concomitant]
     Indication: NAUSEA
     Route: 048
  29. COMPAZINE [Concomitant]
     Indication: VOMITING
  30. FIORINAL [Concomitant]
     Indication: MIGRAINE
     Dosage: 50-325MG
     Route: 048
  31. CYPRUS PH [Concomitant]
     Indication: INFECTION PROPHYLAXIS

REACTIONS (16)
  - CYANOSIS [None]
  - INTESTINAL OBSTRUCTION [None]
  - ABDOMINAL PAIN [None]
  - TENDON INJURY [None]
  - NAUSEA [None]
  - VITAMIN B12 DEFICIENCY [None]
  - FEELING ABNORMAL [None]
  - RESPIRATORY ARREST [None]
  - OEDEMA PERIPHERAL [None]
  - SKIN DISCOLOURATION [None]
  - INJECTION SITE PAIN [None]
  - LIP DISCOLOURATION [None]
  - FALL [None]
  - CONVULSION [None]
  - APPARENT DEATH [None]
  - DEHYDRATION [None]
